FAERS Safety Report 10072610 (Version 1)
Quarter: 2014Q2

REPORT INFORMATION
  Report Type: Report from Study
  Country: MX (occurrence: MX)
  Receive Date: 20140411
  Receipt Date: 20140411
  Transmission Date: 20141212
  Serious: Yes (Hospitalization, Other)
  Sender: FDA-Public Use
  Company Number: PHHY2014MX041803

PATIENT
  Age: 68 Year
  Sex: Female

DRUGS (7)
  1. ONBREZ [Suspect]
     Indication: EMPHYSEMA
     Dosage: 150 UG, DAILY
     Route: 055
     Dates: start: 20140107, end: 201403
  2. ONBREZ [Suspect]
     Indication: OFF LABEL USE
  3. SPIRIVA [Concomitant]
     Indication: LUNG DISORDER
     Dosage: 1 DF, DAILY
     Dates: end: 201401
  4. SERETIDE [Concomitant]
     Indication: LUNG DISORDER
     Dosage: 4 DF, DAILY
     Dates: end: 201401
  5. ASPIRIN [Concomitant]
     Indication: PULSE ABNORMAL
     Dosage: 1 DF, DAILY
  6. OXYGEN [Concomitant]
     Dosage: UNK AT NIGHT
  7. OXYGEN [Concomitant]
     Dosage: UNK AT DAYS AND AT NIGHT

REACTIONS (2)
  - Lung infection [Unknown]
  - Heart rate increased [Recovered/Resolved]
